FAERS Safety Report 26096150 (Version 2)
Quarter: 2025Q4

REPORT INFORMATION
  Report Type: Spontaneous
  Country: EU (occurrence: EU)
  Receive Date: 20251127
  Receipt Date: 20251127
  Transmission Date: 20260117
  Serious: Yes (Hospitalization, Other)
  Sender: ALEXION PHARMACEUTICALS
  Company Number: EU-ASTRAZENECA-202511EEA021221BG

PATIENT
  Age: 78 Year
  Sex: Male

DRUGS (14)
  1. DAPAGLIFLOZIN [Suspect]
     Active Substance: DAPAGLIFLOZIN
     Indication: Diabetes mellitus
     Dosage: 10 MILLIGRAM
     Route: 065
  2. DAPAGLIFLOZIN [Suspect]
     Active Substance: DAPAGLIFLOZIN
     Indication: Cardiac failure
  3. DAPAGLIFLOZIN [Suspect]
     Active Substance: DAPAGLIFLOZIN
     Indication: Chronic kidney disease
  4. SINTROM [Concomitant]
     Active Substance: ACENOCOUMAROL
  5. BISOPROLOL FUMARATE [Concomitant]
     Active Substance: BISOPROLOL FUMARATE
  6. ALLOPURINOL [Concomitant]
     Active Substance: ALLOPURINOL
  7. Valtensam [Concomitant]
     Dosage: UNK MILLIGRAM
  8. ATORVASTATIN CALCIUM [Concomitant]
     Active Substance: ATORVASTATIN CALCIUM
  9. FENOFIBRATE [Concomitant]
     Active Substance: FENOFIBRATE
  10. FUROSEMIDE [Concomitant]
     Active Substance: FUROSEMIDE
  11. CANDESARTAN [Concomitant]
     Active Substance: CANDESARTAN
  12. Theotard [Concomitant]
  13. NEBIVOLOL [Concomitant]
     Active Substance: NEBIVOLOL
  14. RYZODEG 70/30 [Concomitant]
     Active Substance: INSULIN ASPART\INSULIN DEGLUDEC

REACTIONS (5)
  - Dysuria [Unknown]
  - Haematuria [Unknown]
  - Urinary tract infection [Unknown]
  - Cardiac failure chronic [Unknown]
  - Hyperkalaemia [Unknown]
